FAERS Safety Report 8322298-X (Version None)
Quarter: 2012Q2

REPORT INFORMATION
  Report Type: 
  Country: None (occurrence: None)
  Receive Date: 20120430
  Receipt Date: 20120426
  Transmission Date: 20120825
  Serious: Yes (Death, Life-Threatening, Hospitalization)
  Sender: FDA-Public Use
  Company Number: PHHY2012FR012994

PATIENT
  Sex: Female
  Weight: 61 kg

DRUGS (11)
  1. ONBREZ [Suspect]
     Indication: ASTHMA
     Dosage: 150 UG, IN THE EVENING
     Dates: start: 20120213
  2. PULMICORT [Concomitant]
  3. FUNGIZONE [Concomitant]
  4. MEDROL [Concomitant]
  5. FLUTICASONE PROPIONATE/SALMETEROL [Concomitant]
     Indication: ASTHMA
  6. PREDNISOLONE [Suspect]
     Indication: BRONCHITIS
     Dosage: 1 DF (2.5 TABLETS IN THE MORNING) , QD
     Route: 048
     Dates: start: 20120213
  7. VENTOLIN [Concomitant]
     Indication: ASTHMA
  8. BRONCHOKOD [Concomitant]
     Indication: BRONCHITIS
  9. ONBREZ [Suspect]
     Indication: CHRONIC OBSTRUCTIVE PULMONARY DISEASE
     Dosage: 150 UG, QD
     Dates: start: 20110901
  10. ROCEPHIN [Suspect]
     Indication: BRONCHITIS
     Dosage: 1 DF, UNK
     Route: 030
     Dates: start: 20120213
  11. PHOLCODINE TAB [Suspect]
     Indication: COUGH
     Dosage: 1 TSP, QD
     Route: 048
     Dates: start: 20120213

REACTIONS (3)
  - COMA [None]
  - ANAPHYLACTIC SHOCK [None]
  - CARDIAC ARREST [None]
